FAERS Safety Report 4819961-1 (Version None)
Quarter: 2005Q4

REPORT INFORMATION
  Report Type: 
  Country: None (occurrence: None)
  Receive Date: 20051103
  Receipt Date: 20041108
  Transmission Date: 20060501
  Serious: Yes (Disabling, Other)
  Sender: FDA-Public Use
  Company Number: US-MERCK-0411USA01462

PATIENT
  Age: 46 Year
  Sex: Male

DRUGS (1)
  1. VIOXX [Suspect]
     Indication: ARTHRITIS
     Route: 048
     Dates: start: 20001212, end: 20040729

REACTIONS (4)
  - MYOCARDIAL INFARCTION [None]
  - OVERDOSE [None]
  - PAIN [None]
  - POLYTRAUMATISM [None]
